FAERS Safety Report 17916296 (Version 8)
Quarter: 2020Q3

REPORT INFORMATION
  Report Type: Report from Study
  Country: US (occurrence: US)
  Receive Date: 20200619
  Receipt Date: 20200910
  Transmission Date: 20201103
  Serious: Yes (Death, Life-Threatening)
  Sender: FDA-Public Use
  Company Number: US-ROCHE-2614732

PATIENT
  Age: 68 Year
  Sex: Male
  Weight: 69.6 kg

DRUGS (52)
  1. ROBITUSSIN DM [Concomitant]
     Active Substance: DEXTROMETHORPHAN HYDROBROMIDE\GUAIFENESIN
     Indication: COUGH
     Dates: start: 20200520
  2. TYLENOL [Concomitant]
     Active Substance: ACETAMINOPHEN
     Indication: HEADACHE
  3. REMDESIVIR. [Concomitant]
     Active Substance: REMDESIVIR
     Indication: COVID-19
     Dates: start: 20200523
  4. ZOFRAN [Concomitant]
     Active Substance: ONDANSETRON HYDROCHLORIDE
     Indication: NAUSEA
     Dates: start: 20200523, end: 20200523
  5. ATIVAN [Concomitant]
     Active Substance: LORAZEPAM
     Dates: start: 20200529, end: 20200603
  6. DEXTROMETHORPHAN HYDROBROMIDE. [Concomitant]
     Active Substance: DEXTROMETHORPHAN HYDROBROMIDE
     Indication: COUGH
     Dates: start: 20200609
  7. CALCIUM GLUCONATE. [Concomitant]
     Active Substance: CALCIUM GLUCONATE
     Indication: HYPOCALCAEMIA
     Dates: start: 20200612, end: 20200612
  8. MIRALAX [Concomitant]
     Active Substance: POLYETHYLENE GLYCOL 3350
     Indication: CONSTIPATION
     Dates: start: 20200523
  9. LISPRO [Concomitant]
     Active Substance: INSULIN LISPRO
     Indication: DIABETES MELLITUS
     Dosage: DOSE: 2 UNIT
     Dates: start: 20200520, end: 20200520
  10. POTASSIUM CHLORIDE. [Concomitant]
     Active Substance: POTASSIUM CHLORIDE
     Indication: HYPOKALAEMIA
     Dosage: DOSE: 40 OTHER
     Dates: start: 20200522
  11. ACETAZOLAMIDE. [Concomitant]
     Active Substance: ACETAZOLAMIDE
     Indication: OEDEMA
     Dates: start: 20200617
  12. HEPARIN [Concomitant]
     Active Substance: HEPARIN SODIUM
     Indication: THROMBOSIS PROPHYLAXIS
     Dosage: 5000 UNIT
     Dates: start: 20200616
  13. ROCURONIUM [Concomitant]
     Active Substance: ROCURONIUM BROMIDE
     Indication: ANAESTHESIA
     Dates: start: 20200611, end: 20200617
  14. TRAZODONE [Concomitant]
     Active Substance: TRAZODONE HYDROCHLORIDE
     Indication: INSOMNIA
     Dates: start: 20200707, end: 20200707
  15. LIPITOR [Concomitant]
     Active Substance: ATORVASTATIN CALCIUM
     Indication: HYPERLIPIDAEMIA
  16. DILAUDID [Concomitant]
     Active Substance: HYDROMORPHONE HYDROCHLORIDE
     Indication: PAIN
     Dates: start: 20200523
  17. MOTRIN [Concomitant]
     Active Substance: IBUPROFEN
     Indication: HEADACHE
     Dates: start: 20200521, end: 20200521
  18. SCOT?TUSSIN DIABETES COUGH SUPPRESSANT FORMULA WITH DM [Concomitant]
     Indication: COUGH
     Dates: start: 20200609
  19. FAMOTIDINE. [Concomitant]
     Active Substance: FAMOTIDINE
     Indication: PROPHYLAXIS
     Dates: start: 20200606
  20. PANTOPRAZOLE [Concomitant]
     Active Substance: PANTOPRAZOLE
     Indication: PROPHYLAXIS
     Dates: start: 20200612, end: 20200612
  21. TOCILIZUMAB. [Suspect]
     Active Substance: TOCILIZUMAB
     Indication: COVID-19 PNEUMONIA
     Dosage: AT 17:43?VOLUME OF LAST TOCILIZUMAB ADMINISTERED PRIOR TO SAE ONSET 100 ML
     Route: 042
     Dates: start: 20200521
  22. ASPRIN [Concomitant]
     Active Substance: ASPIRIN
     Dates: end: 20200611
  23. LACTULOSE. [Concomitant]
     Active Substance: LACTULOSE
     Indication: CONSTIPATION
     Dates: start: 20200525
  24. METFORMIN [Concomitant]
     Active Substance: METFORMIN HYDROCHLORIDE
     Indication: DIABETES MELLITUS
  25. IOPAMIDOL [Concomitant]
     Active Substance: IOPAMIDOL
     Dates: start: 20200612, end: 20200612
  26. LABETALOL [Concomitant]
     Active Substance: LABETALOL\LABETALOL HYDROCHLORIDE
     Indication: HYPERTENSION
     Dates: start: 20200610, end: 20200610
  27. GABAPENTIN. [Concomitant]
     Active Substance: GABAPENTIN
     Dates: start: 20200603
  28. NPH INSULIN [Concomitant]
     Active Substance: INSULIN BEEF
     Indication: DIABETES MELLITUS
     Dosage: 15 UNITS
  29. MUCINEX [Concomitant]
     Active Substance: GUAIFENESIN
     Indication: COUGH
     Dates: start: 20200609
  30. DEXTROSE. [Concomitant]
     Active Substance: DEXTROSE
     Dates: start: 20200523
  31. MAGNESIUM SULFATE. [Concomitant]
     Active Substance: MAGNESIUM SULFATE
     Indication: HYPOMAGNESAEMIA
     Dates: start: 20200615, end: 20200615
  32. DIPRIVAN [Concomitant]
     Active Substance: PROPOFOL
     Indication: ANAESTHESIA
     Dosage: DOSE 15 OTHER
     Dates: start: 20200523
  33. PERIDEX [Concomitant]
     Active Substance: CHLORHEXIDINE GLUCONATE
     Dates: start: 20200523
  34. SUBLIMAZE [Concomitant]
     Active Substance: FENTANYL CITRATE
     Indication: PAIN
     Dosage: DOSE: 25 OTHER
     Dates: start: 20200523, end: 20200523
  35. VASOPRESSIN. [Concomitant]
     Active Substance: VASOPRESSIN
     Indication: HYPOTENSION
     Dates: start: 20200523, end: 20200523
  36. IODIXANOL. [Concomitant]
     Active Substance: IODIXANOL
     Dates: start: 20200612, end: 20200612
  37. MIDAZOLAM. [Concomitant]
     Active Substance: MIDAZOLAM
     Indication: SEDATION
     Dates: start: 20200609, end: 20200609
  38. LOVENOX [Concomitant]
     Active Substance: ENOXAPARIN SODIUM
     Dates: start: 20200520
  39. GLUCAGON. [Concomitant]
     Active Substance: GLUCAGON
     Indication: HYPOGLYCAEMIA
     Dates: start: 20200520, end: 20200520
  40. SENOKOT?S [Concomitant]
     Active Substance: DOCUSATE SODIUM\SENNOSIDES
     Indication: CONSTIPATION
     Dates: start: 20200523
  41. PRILOSEC [Concomitant]
     Active Substance: OMEPRAZOLE MAGNESIUM
     Dates: start: 20200523
  42. TYLENOL [Concomitant]
     Active Substance: ACETAMINOPHEN
     Indication: PAIN
     Dates: start: 20200523, end: 20200612
  43. TYLENOL [Concomitant]
     Active Substance: ACETAMINOPHEN
     Indication: PYREXIA
  44. LASIX [Concomitant]
     Active Substance: FUROSEMIDE
     Indication: FLUID OVERLOAD
     Dates: start: 20200523
  45. NOREPINEPHRINE. [Concomitant]
     Active Substance: NOREPINEPHRINE
     Indication: HYPOTENSION
     Dates: start: 20200523, end: 20200614
  46. HYDRALAZINE [Concomitant]
     Active Substance: HYDRALAZINE HYDROCHLORIDE
     Indication: HYPERTENSION
     Dates: start: 20200529, end: 20200611
  47. LANTUS [Concomitant]
     Active Substance: INSULIN GLARGINE
     Indication: DIABETES MELLITUS
     Dosage: 24 UNITS
     Dates: start: 20200607
  48. LISINOPRIL. [Concomitant]
     Active Substance: LISINOPRIL
     Indication: HYPERTENSION
  49. METOLAZONE. [Concomitant]
     Active Substance: METOLAZONE
     Indication: POLYURIA
     Dates: start: 20200603, end: 20200614
  50. THIAMINE. [Concomitant]
     Active Substance: THIAMINE
     Dates: start: 20200616, end: 20200618
  51. MEROPENEM. [Concomitant]
     Active Substance: MEROPENEM
     Indication: BACTERIAL INFECTION
     Dates: start: 20200626
  52. OXYCODONE [Concomitant]
     Active Substance: OXYCODONE
     Indication: PAIN
     Dates: start: 20200629

REACTIONS (8)
  - Enterobacter pneumonia [Recovering/Resolving]
  - Lower gastrointestinal haemorrhage [Recovering/Resolving]
  - Pneumonia bacterial [Not Recovered/Not Resolved]
  - Acute kidney injury [Not Recovered/Not Resolved]
  - Melaena [Not Recovered/Not Resolved]
  - COVID-19 pneumonia [Fatal]
  - Streptococcal bacteraemia [Not Recovered/Not Resolved]
  - Enterobacter pneumonia [Not Recovered/Not Resolved]

NARRATIVE: CASE EVENT DATE: 20200528
